FAERS Safety Report 9257014 (Version 1)
Quarter: 2013Q2

REPORT INFORMATION
  Report Type: Spontaneous
  Country: GB (occurrence: GB)
  Receive Date: 20130426
  Receipt Date: 20130426
  Transmission Date: 20140414
  Serious: Yes (Hospitalization, Other)
  Sender: FDA-Public Use
  Company Number: GB-ELI_LILLY_AND_COMPANY-GB201304005275

PATIENT
  Age: 70 Year
  Sex: Male

DRUGS (11)
  1. OLANZAPINE [Suspect]
     Indication: HYPOMANIA
     Dosage: 7.5 MG, QD
     Route: 048
     Dates: start: 20120810, end: 20121101
  2. ABILIFY [Concomitant]
     Indication: BIPOLAR DISORDER
     Dosage: 5 MG, QD
     Route: 048
     Dates: start: 201004, end: 201208
  3. ABILIFY [Concomitant]
     Dosage: 5 MG, QD
     Route: 048
     Dates: start: 201211
  4. MIRTAZAPINE [Concomitant]
     Indication: BIPOLAR DISORDER
     Dosage: 30 MG, QD
     Dates: start: 2010, end: 201208
  5. MIRTAZAPINE [Concomitant]
     Dosage: UNK
     Route: 048
     Dates: start: 20121231
  6. ATORVASTATIN [Concomitant]
     Dosage: 20 MG, QD
  7. BISOPROLOL [Concomitant]
     Dosage: 1.25 MG, QD
  8. FOLIC ACID [Concomitant]
     Dosage: 5 MG, QD
  9. LANSOPRAZOLE [Concomitant]
     Dosage: 30 MG, QD
  10. LEVOTHYROXINE [Concomitant]
     Dosage: 125 UG, QD
  11. RAMIPRIL [Concomitant]
     Dosage: 2.5 MG, QD

REACTIONS (3)
  - Embolism venous [Unknown]
  - Fatigue [Unknown]
  - Sedation [Unknown]
